FAERS Safety Report 11489724 (Version 1)
Quarter: 2015Q3

REPORT INFORMATION
  Report Type: Spontaneous
  Country: JP (occurrence: JP)
  Receive Date: 20150910
  Receipt Date: 20150910
  Transmission Date: 20151125
  Serious: Yes (Hospitalization)
  Sender: FDA-Public Use
  Company Number: JP-GLAXOSMITHKLINE-JP2015GSK129340

PATIENT
  Age: 80 Year
  Sex: Male

DRUGS (16)
  1. CARBOCYSTEINE [Concomitant]
     Active Substance: CARBOCYSTEINE
     Indication: NASOPHARYNGITIS
     Dosage: 500 MG, TID
     Dates: start: 20150528
  2. OXAROL LOTION [Concomitant]
     Indication: TINEA PEDIS
     Dosage: UNK
     Dates: start: 20150724
  3. ALKERAN [Suspect]
     Active Substance: MELPHALAN
     Indication: PLASMA CELL MYELOMA
     Dosage: 8 MG, CYC
     Route: 048
     Dates: start: 20150519, end: 20150718
  4. RABEPRAZOLE [Concomitant]
     Active Substance: RABEPRAZOLE
     Indication: GASTRITIS PROPHYLAXIS
     Dosage: UNK
     Route: 048
     Dates: start: 20150519
  5. DEQUALINIUM [Concomitant]
     Active Substance: DEQUALINIUM
     Indication: NASOPHARYNGITIS
     Dosage: 0.25 MG, PRN
  6. TULOBUTEROL [Concomitant]
     Active Substance: TULOBUTEROL
     Indication: NASOPHARYNGITIS
     Dosage: UNK
     Route: 062
     Dates: start: 20150530
  7. THALIDOMIDE [Suspect]
     Active Substance: THALIDOMIDE
     Indication: PLASMA CELL MYELOMA
     Dosage: 100 MG, 1D
     Route: 048
     Dates: start: 20150519, end: 20150810
  8. PREDNISOLONE. [Suspect]
     Active Substance: PREDNISOLONE
     Indication: PLASMA CELL MYELOMA
     Dosage: 30 MG, CYC
     Route: 048
     Dates: start: 20150519, end: 20150718
  9. HYALEIN [Concomitant]
     Active Substance: HYALURONATE SODIUM
     Indication: DRY EYE
  10. ZEFNART CREAM [Concomitant]
     Indication: TINEA PEDIS
     Dosage: UNK
     Route: 062
     Dates: start: 20150724
  11. MEDICON (DEXTROMETHORPHAN HYDROBROMIDE HYDRATE) [Concomitant]
     Indication: NASOPHARYNGITIS
     Dosage: UNK
     Dates: start: 20150528
  12. BAYASPIRIN [Concomitant]
     Active Substance: ASPIRIN
     Indication: THROMBOSIS PROPHYLAXIS
     Dosage: 100 MG, 1D
     Dates: start: 20150519, end: 20150812
  13. PIRENOXINE [Concomitant]
     Active Substance: PIRENOXINE
     Indication: CATARACT
  14. MS ONSHIPPU [Concomitant]
     Indication: SPINAL COLUMN STENOSIS
     Route: 062
  15. REBAMIPIDE [Concomitant]
     Active Substance: REBAMIPIDE
     Indication: GASTRITIS PROPHYLAXIS
     Dosage: UNK
     Dates: start: 20150519
  16. BACTRAMIN [Concomitant]
     Active Substance: SULFAMETHOXAZOLE\TRIMETHOPRIM
     Indication: INFECTION PROPHYLAXIS
     Dosage: UNK
     Route: 048
     Dates: start: 20150617

REACTIONS (1)
  - Venous thrombosis [Not Recovered/Not Resolved]

NARRATIVE: CASE EVENT DATE: 20150812
